FAERS Safety Report 4401449-3 (Version None)
Quarter: 2004Q3

REPORT INFORMATION
  Report Type: 
  Country: None (occurrence: None)
  Receive Date: 20040907
  Receipt Date: 20040510
  Transmission Date: 20050211
  Serious: No
  Sender: FDA-Public Use
  Company Number: US-BRISTOL-MYERS SQUIBB COMPANY-12583134

PATIENT
  Age: 84 Year
  Sex: Male
  Weight: 82 kg

DRUGS (5)
  1. COUMADIN [Suspect]
     Indication: ATRIAL FIBRILLATION
     Route: 048
  2. TOPROL-XL [Concomitant]
     Dosage: DURATION OF THERAPY:  3 TO 4 YEARS.
  3. LASIX [Concomitant]
     Dosage: DURATION OF THERAPY:  3 TO 4 YEARS.
  4. TRICOR [Concomitant]
     Dosage: DURATION OF THERAPY:  3 TO 4 YEARS.
  5. SAW PALMETTO [Concomitant]
     Dosage: DURATION OF THERAPY:  3 TO 4 YEARS.

REACTIONS (1)
  - ANAEMIA [None]
